FAERS Safety Report 7059755-2 (Version None)
Quarter: 2010Q4

REPORT INFORMATION
  Report Type: 
  Country: None (occurrence: None)
  Receive Date: 20101025
  Receipt Date: 20101018
  Transmission Date: 20110411
  Serious: Yes (Other)
  Sender: FDA-Public Use
  Company Number: US-PFIZER INC-2010132763

PATIENT
  Sex: Female
  Weight: 66 kg

DRUGS (4)
  1. CHANTIX [Suspect]
     Indication: SMOKING CESSATION THERAPY
     Dosage: 0.5 MG, DAILY
     Route: 048
     Dates: start: 20100930
  2. BENICAR [Concomitant]
     Indication: HYPERTENSION
     Dosage: UNK
  3. ZETIA [Concomitant]
     Indication: BLOOD CHOLESTEROL INCREASED
     Dosage: UNK
  4. CRESTOR [Concomitant]
     Indication: BLOOD CHOLESTEROL INCREASED
     Dosage: UNK

REACTIONS (8)
  - ERYTHEMA [None]
  - HEADACHE [None]
  - NAUSEA [None]
  - OROPHARYNGEAL BLISTERING [None]
  - PALPITATIONS [None]
  - RASH [None]
  - SKIN EXFOLIATION [None]
  - VOMITING [None]
